APPROVED DRUG PRODUCT: BORTEZOMIB
Active Ingredient: BORTEZOMIB
Strength: 3.5MG/VIAL
Dosage Form/Route: POWDER;INTRAVENOUS
Application: N206927 | Product #001
Applicant: DR REDDYS LABORATORIES LTD
Approved: Oct 4, 2019 | RLD: No | RS: No | Type: DISCN